FAERS Safety Report 7316740-0 (Version None)
Quarter: 2011Q1

REPORT INFORMATION
  Report Type: 
  Country: None (occurrence: None)
  Receive Date: 20110226
  Receipt Date: 20100803
  Transmission Date: 20110831
  Serious: No
  Sender: FDA-Public Use
  Company Number: US-ALLERGAN-1010072US

PATIENT
  Sex: Female

DRUGS (2)
  1. BOTOXA? [Suspect]
     Indication: PAIN
     Dosage: UNK
     Route: 030
  2. BOTOXA? [Suspect]
     Route: 030

REACTIONS (1)
  - DRUG INEFFECTIVE [None]
